FAERS Safety Report 7641691-1 (Version None)
Quarter: 2011Q3

REPORT INFORMATION
  Report Type: 
  Country: None (occurrence: None)
  Receive Date: 20110728
  Receipt Date: 20110721
  Transmission Date: 20111222
  Serious: Yes (Life-Threatening)
  Sender: FDA-Public Use
  Company Number: FR-GLAXOSMITHKLINE-B0734324A

PATIENT
  Age: 70 Year
  Sex: Female

DRUGS (4)
  1. ONDANSETRON [Suspect]
     Indication: PREMEDICATION
     Route: 042
  2. METHYLPREDNISOLONE [Suspect]
     Indication: PREMEDICATION
     Route: 042
  3. DEXCHLORPHENIRAMIN [Concomitant]
     Indication: PREMEDICATION
     Route: 048
  4. ZANTAC [Suspect]
     Indication: PREMEDICATION
     Route: 042

REACTIONS (7)
  - BRADYCARDIA [None]
  - INFUSION RELATED REACTION [None]
  - TACHYCARDIA [None]
  - HYPERTENSION [None]
  - HYPOTENSION [None]
  - PRURITUS [None]
  - OXYGEN SATURATION DECREASED [None]
